FAERS Safety Report 7335806-2 (Version None)
Quarter: 2011Q1

REPORT INFORMATION
  Report Type: 
  Country: None (occurrence: None)
  Receive Date: 20110307
  Receipt Date: 20110225
  Transmission Date: 20110831
  Serious: Yes (Other)
  Sender: FDA-Public Use
  Company Number: US-ASTELLAS-2011US000843

PATIENT
  Sex: Male

DRUGS (9)
  1. PROGRAF [Suspect]
     Indication: INTESTINE TRANSPLANT REJECTION
  2. PROGRAF [Suspect]
     Indication: PANCREAS TRANSPLANT
  3. THYMOGLOBULIN [Suspect]
     Indication: INTESTINE TRANSPLANT REJECTION
     Dosage: UNK
     Route: 065
  4. MYCOPHENOLATE MOFETIL [Suspect]
     Indication: LIVER AND SMALL INTESTINE TRANSPLANT
     Dosage: UNK
     Route: 065
  5. MYCOPHENOLATE MOFETIL [Suspect]
     Indication: PANCREAS TRANSPLANT
  6. PREDNISOLONE [Suspect]
     Indication: PANCREAS TRANSPLANT
  7. PREDNISONE [Suspect]
     Indication: INTESTINE TRANSPLANT REJECTION
     Dosage: UNK
     Route: 065
  8. PROGRAF [Suspect]
     Indication: LIVER AND SMALL INTESTINE TRANSPLANT
     Dosage: UNK
     Route: 065
  9. PREDNISOLONE [Suspect]
     Indication: LIVER AND SMALL INTESTINE TRANSPLANT
     Dosage: UNK
     Route: 048

REACTIONS (4)
  - TRANSPLANT FAILURE [None]
  - INTESTINE TRANSPLANT REJECTION [None]
  - METAPLASIA [None]
  - MYCOBACTERIUM FORTUITUM INFECTION [None]
